FAERS Safety Report 5080844-6 (Version None)
Quarter: 2006Q3

REPORT INFORMATION
  Report Type: 
  Country: None (occurrence: None)
  Receive Date: 20060810
  Receipt Date: 20060801
  Transmission Date: 20061208
  Serious: Yes (Hospitalization)
  Sender: FDA-Public Use
  Company Number: 2006092726

PATIENT
  Age: 52 Year
  Sex: Male

DRUGS (3)
  1. CITALOR (ATORVASTATIN) [Suspect]
     Indication: BLOOD CHOLESTEROL INCREASED
     Dosage: 10 MG (10 MG,DAILY), ORAL
     Route: 048
     Dates: start: 20010101
  2. GLIOTEN (ENALAPRIL MALEATE) [Concomitant]
  3. MODURETIC 5-50 [Concomitant]

REACTIONS (5)
  - DRUG DOSE OMISSION [None]
  - ECONOMIC PROBLEM [None]
  - MYOCARDIAL ISCHAEMIA [None]
  - OBSTRUCTION [None]
  - VENTRICULAR DYSFUNCTION [None]
